FAERS Safety Report 6128320-3 (Version None)
Quarter: 2009Q1

REPORT INFORMATION
  Report Type: 
  Country: None (occurrence: None)
  Receive Date: 20090323
  Receipt Date: 20090316
  Transmission Date: 20090719
  Serious: Yes (Other)
  Sender: FDA-Public Use
  Company Number: A0774424A

PATIENT
  Age: 59 Year
  Sex: Female

DRUGS (2)
  1. AVODART [Suspect]
     Route: 048
  2. UNKNOWN [Concomitant]

REACTIONS (3)
  - BREAST MASS [None]
  - NEOPLASM MALIGNANT [None]
  - OFF LABEL USE [None]
